FAERS Safety Report 7590084-4 (Version None)
Quarter: 2011Q3

REPORT INFORMATION
  Report Type: 
  Country: None (occurrence: None)
  Receive Date: 20110705
  Receipt Date: 20110511
  Transmission Date: 20111222
  Serious: Yes (Hospitalization)
  Sender: FDA-Public Use
  Company Number: B0718954A

PATIENT
  Sex: Female
  Weight: 170 kg

DRUGS (2)
  1. TYKERB [Suspect]
     Dosage: 1250MG PER DAY
     Route: 065
     Dates: start: 20110406, end: 20110419
  2. CAPECITABINE [Concomitant]

REACTIONS (10)
  - PYREXIA [None]
  - CHEST PAIN [None]
  - HEADACHE [None]
  - DYSPNOEA [None]
  - DERMATITIS ALLERGIC [None]
  - HAEMORRHAGE URINARY TRACT [None]
  - MUSCLE SPASMS [None]
  - JOINT SWELLING [None]
  - CYSTITIS [None]
  - ASTHENIA [None]
